FAERS Safety Report 9973742 (Version 1)
Quarter: 2014Q1

REPORT INFORMATION
  Report Type: Spontaneous
  Country: US (occurrence: US)
  Receive Date: 20140306
  Receipt Date: 20140306
  Transmission Date: 20141002
  Serious: No
  Sender: FDA-Public Use
  Company Number: US-GILEAD-2012-0054362

PATIENT
  Sex: Male

DRUGS (2)
  1. VIREAD [Suspect]
     Dosage: 300 MG, QD
     Dates: start: 2010
  2. LISINOPRIL [Concomitant]
     Indication: HYPERTENSION
     Dosage: UNK
     Dates: start: 2008

REACTIONS (1)
  - Blood creatinine abnormal [Unknown]
